FAERS Safety Report 9415664 (Version 1)
Quarter: 2013Q3

REPORT INFORMATION
  Report Type: Spontaneous
  Country: GB (occurrence: GB)
  Receive Date: 20130723
  Receipt Date: 20130723
  Transmission Date: 20140515
  Serious: Yes (Other)
  Sender: FDA-Public Use
  Company Number: GB-ABBOTT-13P-167-1121334-00

PATIENT
  Sex: 0

DRUGS (1)
  1. HUMIRA [Suspect]
     Indication: PSORIASIS

REACTIONS (3)
  - Non-alcoholic steatohepatitis [Unknown]
  - Drug effect decreased [Unknown]
  - Liver function test abnormal [Unknown]
